FAERS Safety Report 24022349 (Version 1)
Quarter: 2024Q2

REPORT INFORMATION
  Report Type: Spontaneous
  Country: SE (occurrence: SE)
  Receive Date: 20240627
  Receipt Date: 20240627
  Transmission Date: 20240716
  Serious: No
  Sender: FDA-Public Use
  Company Number: None

PATIENT
  Age: 78 Year
  Sex: Male
  Weight: 101.0 kg

DRUGS (15)
  1. ROZLYTREK [Suspect]
     Active Substance: ENTRECTINIB
     Indication: Lung adenocarcinoma
     Route: 065
     Dates: start: 20230620
  2. PRIMPERAN [Concomitant]
     Active Substance: METOCLOPRAMIDE HYDROCHLORIDE
     Dates: start: 20230530
  3. ASPIRIN [Concomitant]
     Active Substance: ASPIRIN
     Dates: start: 20180619
  4. BENDROFLUMETHIAZIDE\POTASSIUM CHLORIDE [Concomitant]
     Active Substance: BENDROFLUMETHIAZIDE\POTASSIUM CHLORIDE
     Dates: start: 20180619
  5. ATORVASTATIN [Concomitant]
     Active Substance: ATORVASTATIN
     Dates: start: 20230510
  6. DESLORATADINE [Concomitant]
     Active Substance: DESLORATADINE
     Dates: start: 20230511
  7. BETAPRED [Concomitant]
     Active Substance: BETAMETHASONE SODIUM PHOSPHATE
     Dosage: 8X1VB
     Dates: start: 20230530
  8. FOLVIDON [Concomitant]
     Dates: start: 20230530
  9. OLANZAPINE [Concomitant]
     Active Substance: OLANZAPINE
     Dates: start: 20230530
  10. ENALAPRIL [Concomitant]
     Active Substance: ENALAPRIL
     Dates: start: 20180118
  11. BETOLVEX [Concomitant]
     Dates: start: 20230530
  12. ACETYLCYSTEINE [Concomitant]
     Active Substance: ACETYLCYSTEINE
     Dates: start: 20230620
  13. BISOLVON [Concomitant]
     Active Substance: BROMHEXINE HYDROCHLORIDE
     Dosage: 1VBMAX3/D
     Dates: start: 20230510
  14. LERCANIDIPINE [Concomitant]
     Active Substance: LERCANIDIPINE
     Dates: start: 20220519
  15. ATENOLOL [Concomitant]
     Active Substance: ATENOLOL
     Dates: start: 20180820

REACTIONS (4)
  - Blood creatinine increased [Not Recovered/Not Resolved]
  - Hypoaesthesia [Not Recovered/Not Resolved]
  - Oedema [Not Recovered/Not Resolved]
  - Anaemia [Not Recovered/Not Resolved]

NARRATIVE: CASE EVENT DATE: 20230726
